FAERS Safety Report 5174130-3 (Version None)
Quarter: 2006Q4

REPORT INFORMATION
  Report Type: 
  Country: None (occurrence: None)
  Receive Date: 20061214
  Receipt Date: 20060215
  Transmission Date: 20070319
  Serious: No
  Sender: FDA-Public Use
  Company Number: US-AMGEN-US169006

PATIENT
  Sex: Male

DRUGS (4)
  1. ENBREL [Suspect]
     Indication: RHEUMATOID ARTHRITIS
     Route: 065
     Dates: start: 20051222, end: 20060216
  2. ARAVA [Concomitant]
     Route: 065
     Dates: start: 20000601
  3. METHOTREXATE [Concomitant]
     Route: 065
     Dates: start: 19961101
  4. FOLIC ACID [Concomitant]
     Route: 065
     Dates: start: 19990601

REACTIONS (3)
  - INJECTION SITE ERYTHEMA [None]
  - INJECTION SITE SWELLING [None]
  - RASH [None]
